FAERS Safety Report 7515763-6 (Version None)
Quarter: 2011Q2

REPORT INFORMATION
  Report Type: 
  Country: None (occurrence: None)
  Receive Date: 20110601
  Receipt Date: 20110527
  Transmission Date: 20111010
  Serious: Yes (Hospitalization)
  Sender: FDA-Public Use
  Company Number: US-B.I. PHARMACEUTICALS,INC./RIDGEFIELD-2011-BP-07831BP

PATIENT
  Age: 66 Year
  Sex: Male

DRUGS (9)
  1. SIMVASTATIN [Concomitant]
     Dosage: 40 MG
  2. NEXIUM [Concomitant]
     Dosage: 40 MG
  3. LISINOPRIL [Concomitant]
     Dosage: 40 MG
  4. ATENOLOL [Concomitant]
     Dosage: 25 MG
  5. MGO [Concomitant]
     Dosage: 800 MG
  6. NORVASC [Concomitant]
     Dosage: 5 MG
  7. PRADAXA [Suspect]
     Indication: ATRIAL FIBRILLATION
     Dosage: 300 MG
     Route: 048
     Dates: start: 20110103, end: 20110306
  8. LEVOTHYROXINE SODIUM [Concomitant]
     Dosage: 125 MCG
  9. ADVAIR DISKUS 100/50 [Concomitant]

REACTIONS (1)
  - PANCREATITIS [None]
